FAERS Safety Report 6585814-4 (Version None)
Quarter: 2010Q1

REPORT INFORMATION
  Report Type: 
  Country: None (occurrence: None)
  Receive Date: 20100216
  Receipt Date: 20100216
  Transmission Date: 20100710
  Serious: Yes (Hospitalization)
  Sender: FDA-Public Use
  Company Number: None

PATIENT
  Age: 39 Year
  Sex: Female

DRUGS (1)
  1. MEANINGFUL BEAUTY -SPF (SEE #2 BELOW) GUTHY-RENKER OCTINOXATE/OCTISALA [Suspect]
     Indication: THERAPEUTIC SKIN CARE TOPICAL
     Dosage: PER LABEL/DAILY/TOPICAL
     Route: 061

REACTIONS (3)
  - EYE SWELLING [None]
  - THROAT TIGHTNESS [None]
  - URTICARIA [None]
